FAERS Safety Report 8395854 (Version 2)
Quarter: 2012Q4

REPORT INFORMATION
  Report Type: 
  Country: US (occurrence: US)
  Receive Date: 20120208
  Receipt Date: 20121016
  Transmission Date: 20130627
  Serious: No
  Sender: FDA-Public Use
  Company Number: US-ASTRAZENECA-2011SE59466

PATIENT
  Age: 59 Year
  Sex: Female

DRUGS (1)
  1. ACCOLATE [Suspect]
     Route: 048

REACTIONS (4)
  - Adverse event [Unknown]
  - Dry mouth [Unknown]
  - Dry throat [Unknown]
  - Malaise [Unknown]
